FAERS Safety Report 6652861-3 (Version None)
Quarter: 2010Q1

REPORT INFORMATION
  Report Type: 
  Country: None (occurrence: None)
  Receive Date: 20100326
  Receipt Date: 20100315
  Transmission Date: 20100710
  Serious: Yes (Hospitalization)
  Sender: FDA-Public Use
  Company Number: FR-JNJFOC-20100304906

PATIENT
  Age: 37 Year
  Sex: Female

DRUGS (2)
  1. REMICADE [Suspect]
     Indication: CROHN'S DISEASE
     Dosage: 3 INFUSIONS
     Route: 042
  2. REMICADE [Suspect]
     Route: 042

REACTIONS (4)
  - ANGIOEDEMA [None]
  - DRUG INEFFECTIVE [None]
  - DYSPNOEA [None]
  - RASH PAPULAR [None]
